FAERS Safety Report 11592154 (Version 1)
Quarter: 2015Q4

REPORT INFORMATION
  Report Type: Spontaneous
  Country: CH (occurrence: CH)
  Receive Date: 20151005
  Receipt Date: 20151005
  Transmission Date: 20160304
  Serious: Yes (Life-Threatening, Hospitalization)
  Sender: FDA-Public Use
  Company Number: PHHY2015CH118122

PATIENT
  Age: 21 Year
  Sex: Male

DRUGS (6)
  1. LEPONEX [Suspect]
     Active Substance: CLOZAPINE
     Indication: SCHIZOPHRENIA, PARANOID TYPE
     Dosage: 50 MG, QD
     Route: 065
     Dates: start: 20150311
  2. LEPONEX [Suspect]
     Active Substance: CLOZAPINE
     Dosage: 150 MG, QD
     Route: 065
     Dates: start: 20150313
  3. LEPONEX [Suspect]
     Active Substance: CLOZAPINE
     Dosage: 200 MG, QD
     Route: 065
     Dates: start: 20150316
  4. ZYPREXA [Concomitant]
     Active Substance: OLANZAPINE
     Indication: PRODUCT USED FOR UNKNOWN INDICATION
     Route: 065
  5. LEPONEX [Suspect]
     Active Substance: CLOZAPINE
     Dosage: 100 MG, QD
     Route: 065
     Dates: start: 20150312
  6. LEPONEX [Suspect]
     Active Substance: CLOZAPINE
     Dosage: 300 MG, QD
     Dates: start: 20150318, end: 20150321

REACTIONS (5)
  - Pyrexia [Unknown]
  - Arterial thrombosis [Unknown]
  - Hypercoagulation [Unknown]
  - Pancreatitis [Unknown]
  - Embolism [Unknown]

NARRATIVE: CASE EVENT DATE: 20150321
